FAERS Safety Report 9137636 (Version 1)
Quarter: 2013Q1

REPORT INFORMATION
  Report Type: Spontaneous
  Country: US (occurrence: US)
  Receive Date: 20130304
  Receipt Date: 20130304
  Transmission Date: 20140127
  Serious: Yes (Other)
  Sender: FDA-Public Use
  Company Number: US-BAYER-2013-020987

PATIENT
  Age: 61 Year
  Sex: Female
  Weight: 66 kg

DRUGS (2)
  1. BAYER ASPIRIN QUICK RELEASE CRYSTALS [Suspect]
     Dosage: 1 DF, PRN
     Route: 048
  2. BAYER ASPIRIN REGIMEN ADULT LOW STRENGTH [Suspect]
     Indication: ISCHAEMIC HEART DISEASE PROPHYLAXIS
     Dosage: 1 DF, QD
     Route: 048

REACTIONS (5)
  - Pre-existing condition improved [Recovered/Resolved]
  - Anxiety [Recovered/Resolved]
  - Haemorrhagic diathesis [Recovered/Resolved]
  - Change of bowel habit [Recovered/Resolved]
  - Expired drug administered [None]
